FAERS Safety Report 12880756 (Version 1)
Quarter: 2016Q4

REPORT INFORMATION
  Report Type: Spontaneous
  Country: US (occurrence: US)
  Receive Date: 20161024
  Receipt Date: 20161024
  Transmission Date: 20170207
  Serious: No
  Sender: FDA-Public Use
  Company Number: None

PATIENT
  Age: 70 Year
  Sex: Female
  Weight: 49.95 kg

DRUGS (19)
  1. CLARITIN [Concomitant]
     Active Substance: LORATADINE
  2. PREMARIN CREAM [Concomitant]
  3. COQ10 [Concomitant]
     Active Substance: UBIDECARENONE
  4. PROBIOTIC MULTISTRAIN [Concomitant]
  5. OMEGA-3 FISH OIL [Concomitant]
     Active Substance: FISH OIL\OMEGA-3 FATTY ACIDS
  6. B6 [Concomitant]
     Active Substance: PYRIDOXINE HYDROCHLORIDE
  7. CALCIUM  CITRATE WITH D [Concomitant]
  8. PSYLLIUM HUSK FIBER [Concomitant]
  9. FLONASE [Concomitant]
     Active Substance: FLUTICASONE PROPIONATE
  10. SUBLINUAL CYANOCOBALAMIN [Concomitant]
  11. FOLIC ACID. [Concomitant]
     Active Substance: FOLIC ACID
  12. LUTEIN + ZEAXANTHIN [Concomitant]
  13. LEVOTHYROXINE. [Concomitant]
     Active Substance: LEVOTHYROXINE
  14. ESTRADIOL. [Concomitant]
     Active Substance: ESTRADIOL
  15. APPLE CIDER VINEGAR [Concomitant]
     Active Substance: APPLE CIDER VINEGAR
  16. ASPIRIN/CAFFEINE POWDERS [Concomitant]
  17. MONTELUKAST 10 MG TABLETS, 10 MG [Suspect]
     Active Substance: MONTELUKAST SODIUM
     Indication: ASTHMA
     Dosage: ?          QUANTITY:30 TABLET(S);?
     Route: 048
  18. VITAMIN C [Concomitant]
     Active Substance: ASCORBIC ACID
  19. AREDS2 MULTIVITAMIN [Concomitant]

REACTIONS (5)
  - Fatigue [None]
  - Apathy [None]
  - Anxiety [None]
  - Depressed mood [None]
  - Depression [None]

NARRATIVE: CASE EVENT DATE: 20161021
